FAERS Safety Report 17325904 (Version 9)
Quarter: 2021Q1

REPORT INFORMATION
  Report Type: Spontaneous
  Country: US (occurrence: US)
  Receive Date: 20200127
  Receipt Date: 20210120
  Transmission Date: 20210419
  Serious: Yes (Other)
  Sender: FDA-Public Use
  Company Number: US-PFIZER INC-2020034047

PATIENT
  Age: 63 Year
  Sex: Female
  Weight: 68.49 kg

DRUGS (9)
  1. CHANTIX [Suspect]
     Active Substance: VARENICLINE TARTRATE
     Indication: SMOKING CESSATION THERAPY
     Dosage: 1 MG (1 MG (42)), ((11)?1 MG (42) ORAL TABLETS)
     Route: 048
  2. ATORVASTATIN CALCIUM. [Concomitant]
     Active Substance: ATORVASTATIN CALCIUM
     Indication: BLOOD CHOLESTEROL ABNORMAL
     Dosage: 80 MG, 1X/DAY (ONCE AT BEDTIME)
     Route: 048
  3. CHANTIX [Suspect]
     Active Substance: VARENICLINE TARTRATE
     Dosage: 1 MG, 2X/DAY
  4. AMLODIPINE BESYLATE. [Concomitant]
     Active Substance: AMLODIPINE BESYLATE
     Indication: BLOOD PRESSURE ABNORMAL
     Dosage: 5 MG, 1X/DAY
     Route: 048
  5. TRELEGY ELLIPTA [Concomitant]
     Active Substance: FLUTICASONE FUROATE\UMECLIDINIUM BROMIDE\VILANTEROL TRIFENATATE
     Indication: CHRONIC OBSTRUCTIVE PULMONARY DISEASE
     Dosage: UNK, 1X/DAY (1 PUFF)
  6. CHANTIX [Suspect]
     Active Substance: VARENICLINE TARTRATE
     Indication: CARDIAC DISORDER
     Dosage: 0.5 MG (0.5 MG (11)), (CHANTIX STARTING MONTH BOX 0.5 MG)
     Route: 048
  7. BISOPROLOL [Concomitant]
     Active Substance: BISOPROLOL
     Indication: BLOOD PRESSURE ABNORMAL
     Dosage: 10 MG, 1X/DAY (ONCE IN THE EVENING)
     Route: 048
  8. CLOPIDOGREL [Concomitant]
     Active Substance: CLOPIDOGREL BISULFATE
     Indication: BLOOD DISORDER
     Dosage: 75 MG, 1X/DAY
     Route: 048
  9. CHANTIX [Suspect]
     Active Substance: VARENICLINE TARTRATE
     Indication: CHRONIC OBSTRUCTIVE PULMONARY DISEASE
     Dosage: UNK
     Dates: start: 2014

REACTIONS (5)
  - Coronary artery disease [Unknown]
  - Product dispensing error [Unknown]
  - Brain neoplasm malignant [Unknown]
  - Abnormal dreams [Recovered/Resolved]
  - Angiopathy [Unknown]
